FAERS Safety Report 21170231 (Version 1)
Quarter: 2022Q3

REPORT INFORMATION
  Report Type: Spontaneous
  Country: US (occurrence: US)
  Receive Date: 20220804
  Receipt Date: 20220804
  Transmission Date: 20221027
  Serious: Yes (Other)
  Sender: FDA-Public Use
  Company Number: US-SUN PHARMACEUTICAL INDUSTRIES LTD-2022R1-347027

PATIENT

DRUGS (1)
  1. ATORVASTATIN [Suspect]
     Active Substance: ATORVASTATIN
     Indication: Product used for unknown indication
     Dosage: UNK
     Route: 065

REACTIONS (16)
  - Ischaemic stroke [Unknown]
  - Rhabdomyolysis [Unknown]
  - Overdose [Unknown]
  - Glomerular filtration rate abnormal [Unknown]
  - Blood glucose abnormal [Unknown]
  - Blood chloride abnormal [Unknown]
  - Blood calcium abnormal [Unknown]
  - Alanine aminotransferase increased [Unknown]
  - Blood creatinine abnormal [Unknown]
  - Protein total abnormal [Unknown]
  - Blood albumin [Unknown]
  - Glycosylated haemoglobin increased [Unknown]
  - Chromaturia [Unknown]
  - Pain [Unknown]
  - Emotional distress [Unknown]
  - Product dose omission issue [Unknown]
